FAERS Safety Report 18607780 (Version 5)
Quarter: 2021Q3

REPORT INFORMATION
  Report Type: Report from Study
  Country: US (occurrence: US)
  Receive Date: 20201211
  Receipt Date: 20210723
  Transmission Date: 20211014
  Serious: No
  Sender: FDA-Public Use
  Company Number: NVSC2020US327840

PATIENT
  Age: 77 Year
  Sex: Female

DRUGS (1)
  1. ENTRESTO [Suspect]
     Active Substance: SACUBITRIL\VALSARTAN
     Indication: PRODUCT USED FOR UNKNOWN INDICATION
     Dosage: 1 DF, BID (24/26 MG)
     Route: 048
     Dates: start: 20201023

REACTIONS (5)
  - Illness [Recovering/Resolving]
  - Fall [Recovered/Resolved]
  - Fatigue [Recovering/Resolving]
  - Neck pain [Recovering/Resolving]
  - Groin pain [Recovering/Resolving]

NARRATIVE: CASE EVENT DATE: 20201204
